FAERS Safety Report 16323824 (Version 1)
Quarter: 2019Q2

REPORT INFORMATION
  Report Type: Spontaneous
  Country: US (occurrence: US)
  Receive Date: 20190517
  Receipt Date: 20190517
  Transmission Date: 20190711
  Serious: Yes (Other)
  Sender: FDA-Public Use
  Company Number: US-MALLINCKRODT-T201903682

PATIENT
  Age: 72 Year
  Sex: Female

DRUGS (1)
  1. FENTANYL TRANSDERMAL SYSTEM [Suspect]
     Active Substance: FENTANYL
     Indication: PRODUCT USED FOR UNKNOWN INDICATION
     Dosage: 50 MCG/HR PATCH EVERY 72 HRS
     Route: 062
     Dates: start: 201904

REACTIONS (10)
  - Withdrawal syndrome [Unknown]
  - Akathisia [Unknown]
  - Retching [Unknown]
  - Chills [Unknown]
  - Product adhesion issue [Unknown]
  - Skin ulcer [Unknown]
  - Nausea [Unknown]
  - Restless legs syndrome [Unknown]
  - Blood pressure increased [Unknown]
  - Apparent death [Unknown]

NARRATIVE: CASE EVENT DATE: 2019
